FAERS Safety Report 8038044-3 (Version None)
Quarter: 2012Q1

REPORT INFORMATION
  Report Type: 
  Country: None (occurrence: None)
  Receive Date: 20120111
  Receipt Date: 20120103
  Transmission Date: 20120608
  Serious: Yes (Other)
  Sender: FDA-Public Use
  Company Number: US-ASTRAZENECA-2012SE00577

PATIENT
  Age: 62 Year
  Sex: Male

DRUGS (1)
  1. ZOLADEX [Suspect]
     Route: 058

REACTIONS (1)
  - PROSTATE CANCER [None]
